FAERS Safety Report 13588215 (Version 1)
Quarter: 2017Q2

REPORT INFORMATION
  Report Type: Spontaneous
  Country: US (occurrence: US)
  Receive Date: 20170528
  Receipt Date: 20170528
  Transmission Date: 20170830
  Serious: No
  Sender: FDA-Public Use
  Company Number: US-BIOGEN-2017BI00405862

PATIENT
  Age: 26 Year
  Sex: Male

DRUGS (3)
  1. TYSABRI [Suspect]
     Active Substance: NATALIZUMAB
     Indication: MULTIPLE SCLEROSIS
     Route: 065
     Dates: start: 20120323
  2. TYSABRI [Suspect]
     Active Substance: NATALIZUMAB
     Route: 065
  3. TYSABRI [Suspect]
     Active Substance: NATALIZUMAB
     Route: 065
     Dates: start: 20160122

REACTIONS (3)
  - Prescribed underdose [Unknown]
  - Drug dose omission [Not Recovered/Not Resolved]
  - Sluggishness [Not Recovered/Not Resolved]

NARRATIVE: CASE EVENT DATE: 20170514
